FAERS Safety Report 5805923-4 (Version None)
Quarter: 2008Q3

REPORT INFORMATION
  Report Type: 
  Country: None (occurrence: None)
  Receive Date: 20080710
  Receipt Date: 20080707
  Transmission Date: 20090109
  Serious: Yes (Hospitalization, Other)
  Sender: FDA-Public Use
  Company Number: US-ASTRAZENECA-2007UW27384

PATIENT
  Age: 41 Year
  Sex: Female
  Weight: 100 kg

DRUGS (14)
  1. SEROQUEL [Suspect]
     Indication: BIPOLAR DISORDER
     Dosage: 25MG, 60MG, 100MG, 200MG
     Route: 048
     Dates: start: 20000201, end: 20070801
  2. ZYPREXA [Concomitant]
     Dates: start: 20010101
  3. PROZAC [Concomitant]
     Dates: start: 20010101
  4. PROZAC [Concomitant]
     Dates: start: 20010101
  5. TRAZODONE HCL [Concomitant]
     Dates: start: 19970101
  6. EFFEXOR [Concomitant]
     Dates: start: 20010101
  7. ABILIFY [Concomitant]
     Dates: start: 20030101
  8. GEODON [Concomitant]
     Dates: start: 20010101
  9. GEODON [Concomitant]
     Dates: start: 20010101
  10. RISPERDAL [Concomitant]
     Dates: start: 20020101
  11. DEPAKOTE [Concomitant]
     Dates: start: 19970101
  12. PAXIL [Concomitant]
     Dates: start: 19970101
  13. WELLBUTRIN SR [Concomitant]
     Dates: start: 20010101
  14. LEXAPRO [Concomitant]
     Dates: start: 20030101

REACTIONS (4)
  - CARDIOVASCULAR DISORDER [None]
  - CONVULSION [None]
  - DIABETES MELLITUS [None]
  - OBESITY [None]
